FAERS Safety Report 18979372 (Version 1)
Quarter: 2021Q1

REPORT INFORMATION
  Report Type: Spontaneous
  Country: US (occurrence: US)
  Receive Date: 20210308
  Receipt Date: 20210308
  Transmission Date: 20210420
  Serious: Yes (Hospitalization, Other)
  Sender: FDA-Public Use
  Company Number: US-MICRO LABS LIMITED-ML2021-00654

PATIENT
  Age: 59 Year
  Sex: Female

DRUGS (8)
  1. SODIUM NITROPRUSSIDE. [Suspect]
     Active Substance: SODIUM NITROPRUSSIDE
     Indication: CARDIOGENIC SHOCK
  2. MILRINONE [Suspect]
     Active Substance: MILRINONE
     Indication: CARDIOGENIC SHOCK
  3. OCTREOTIDE. [Concomitant]
     Active Substance: OCTREOTIDE
     Dosage: 150 MG/H, INCREASED TO 300 MG/H
  4. VASOPRESSIN. [Suspect]
     Active Substance: VASOPRESSIN
     Indication: CARDIOGENIC SHOCK
  5. MITOMYCIN. [Concomitant]
     Active Substance: MITOMYCIN
  6. DOBUTAMINE [Suspect]
     Active Substance: DOBUTAMINE HYDROCHLORIDE
     Indication: CARDIOGENIC SHOCK
  7. OCTREOTIDE. [Concomitant]
     Active Substance: OCTREOTIDE
     Indication: DIARRHOEA
     Dosage: DEPOT INJECTIONS; ESCALATED TO 60 MG/MONTH
  8. DOXORUBICIN [Concomitant]
     Active Substance: DOXORUBICIN

REACTIONS (1)
  - Drug ineffective [Unknown]
